FAERS Safety Report 16638932 (Version 1)
Quarter: 2019Q3

REPORT INFORMATION
  Report Type: Spontaneous
  Country: US (occurrence: US)
  Receive Date: 20190726
  Receipt Date: 20190726
  Transmission Date: 20191004
  Serious: No
  Sender: FDA-Public Use
  Company Number: US-009507513-1907USA015108

PATIENT
  Age: 34 Year
  Sex: Female
  Weight: 104.31 kg

DRUGS (2)
  1. NEXPLANON [Suspect]
     Active Substance: ETONOGESTREL
     Dosage: 1 IMPLANT
     Route: 059
     Dates: start: 20160711, end: 20190716
  2. NEXPLANON [Suspect]
     Active Substance: ETONOGESTREL
     Dosage: 1 IMPLANT
     Dates: start: 20190716

REACTIONS (4)
  - Complication of device removal [Recovered/Resolved]
  - Device breakage [Recovered/Resolved]
  - Weight increased [Unknown]
  - Product quality issue [Unknown]

NARRATIVE: CASE EVENT DATE: 20160711
